FAERS Safety Report 5269315-1 (Version None)
Quarter: 2007Q1

REPORT INFORMATION
  Report Type: 
  Country: None (occurrence: None)
  Receive Date: 20070319
  Receipt Date: 20070209
  Transmission Date: 20070707
  Serious: Yes (Death)
  Sender: FDA-Public Use
  Company Number: JP-PFIZER INC-2007012702

PATIENT
  Age: 73 Year
  Sex: Male
  Weight: 66 kg

DRUGS (17)
  1. IRINOTECAN HCL [Suspect]
     Indication: RECTAL CANCER
     Route: 042
     Dates: start: 20061004, end: 20061004
  2. IRINOTECAN HCL [Suspect]
     Dosage: DAILY DOSE:200MG
     Route: 042
     Dates: start: 20061021, end: 20070119
  3. FLUOROURACIL [Concomitant]
     Route: 042
     Dates: start: 20061014, end: 20061014
  4. FLUOROURACIL [Concomitant]
     Route: 042
     Dates: start: 20061014, end: 20061016
  5. FLUOROURACIL [Concomitant]
     Route: 042
     Dates: start: 20070119, end: 20070119
  6. FLUOROURACIL [Concomitant]
     Route: 042
  7. CALCIUM FOLINATE [Concomitant]
     Route: 042
     Dates: start: 20061014, end: 20061014
  8. CALCIUM FOLINATE [Concomitant]
     Dates: start: 20070119, end: 20070119
  9. ALBUMIN TANNATE [Concomitant]
     Route: 048
  10. LAC B [Concomitant]
     Route: 048
     Dates: end: 20070128
  11. LOXONIN [Concomitant]
     Dosage: TEXT:3 T-FREQ:1 DOSAGE FORM; THREE TIMES DAILY
     Route: 048
     Dates: end: 20070128
  12. GLIMICRON [Concomitant]
     Route: 048
     Dates: end: 20070126
  13. ADALAT [Concomitant]
     Route: 048
     Dates: end: 20070128
  14. TAKEPRON [Concomitant]
     Route: 048
     Dates: end: 20070128
  15. PRIMPERAN INJ [Concomitant]
     Route: 048
     Dates: end: 20070128
  16. KYTRIL [Concomitant]
     Dosage: TEXT:1 DOSAGE FORM
     Dates: start: 20070119
  17. DECADRON [Concomitant]
     Dosage: DAILY DOSE:8MG
     Dates: start: 20070119

REACTIONS (2)
  - INTERSTITIAL LUNG DISEASE [None]
  - STOMATITIS [None]
